FAERS Safety Report 8942770 (Version 1)
Quarter: 2012Q4

REPORT INFORMATION
  Report Type: Spontaneous
  Country: GB (occurrence: None)
  Receive Date: 20121123
  Receipt Date: 20121123
  Transmission Date: 20130627
  Serious: Yes (Other)
  Sender: FDA-Public Use
  Company Number: 2012-19694

PATIENT
  Sex: Male

DRUGS (1)
  1. FINASTERIDE [Suspect]

REACTIONS (4)
  - Pollakiuria [None]
  - Dysuria [None]
  - Blood urine present [None]
  - Urinary tract inflammation [None]
